FAERS Safety Report 9548670 (Version 1)
Quarter: 2013Q3

REPORT INFORMATION
  Report Type: Spontaneous
  Country: US (occurrence: None)
  Receive Date: 20130923
  Receipt Date: 20130923
  Transmission Date: 20140515
  Serious: Yes (Life-Threatening, Hospitalization)
  Sender: FDA-Public Use
  Company Number: None

PATIENT
  Age: 66 Year
  Sex: Female
  Weight: 77.11 kg

DRUGS (1)
  1. ALLYLESTRENOL [Suspect]
     Indication: WEIGHT DECREASED
     Dates: start: 20130102

REACTIONS (4)
  - Abdominal pain upper [None]
  - Appendicitis perforated [None]
  - Apparent death [None]
  - Supraventricular tachycardia [None]
